FAERS Safety Report 4633476-5 (Version None)
Quarter: 2005Q2

REPORT INFORMATION
  Report Type: 
  Country: None (occurrence: None)
  Receive Date: 20050412
  Receipt Date: 20050404
  Transmission Date: 20051028
  Serious: No
  Sender: FDA-Public Use
  Company Number: 141749USA

PATIENT
  Age: 78 Year
  Sex: Male
  Weight: 52.1637 kg

DRUGS (9)
  1. FLUOROURACIL [Suspect]
     Indication: COLORECTAL CANCER METASTATIC
  2. IRINOTECAN HCL [Suspect]
     Indication: COLORECTAL CANCER METASTATIC
  3. LEUCOVORIN CANCIUM [Suspect]
     Indication: COLORECTAL CANCER METASTATIC
  4. CAPECITABINE [Suspect]
     Indication: COLORECTAL CANCER METASTATIC
  5. VICODIN [Concomitant]
  6. DOXAZOSIN MESYLATE [Concomitant]
  7. FUROSEMIDE [Concomitant]
  8. THEOPHYLLINE [Concomitant]
  9. LORCET-HD [Concomitant]

REACTIONS (21)
  - ALANINE AMINOTRANSFERASE INCREASED [None]
  - ASPARTATE AMINOTRANSFERASE INCREASED [None]
  - BLOOD ALBUMIN DECREASED [None]
  - BLOOD CALCIUM DECREASED [None]
  - BLOOD CHLORIDE INCREASED [None]
  - BLOOD CREATININE INCREASED [None]
  - BLOOD MAGNESIUM DECREASED [None]
  - BLOOD POTASSIUM DECREASED [None]
  - BLOOD PRESSURE SYSTOLIC DECREASED [None]
  - BLOOD UREA INCREASED [None]
  - BLOOD UREA NITROGEN/CREATININE RATIO INCREASED [None]
  - DECREASED APPETITE [None]
  - DEHYDRATION [None]
  - DEPRESSED LEVEL OF CONSCIOUSNESS [None]
  - HAEMATOCRIT DECREASED [None]
  - HAEMOGLOBIN DECREASED [None]
  - ORAL INTAKE REDUCED [None]
  - PCO2 DECREASED [None]
  - RED BLOOD CELL COUNT DECREASED [None]
  - RED CELL DISTRIBUTION WIDTH INCREASED [None]
  - WEIGHT DECREASED [None]
